FAERS Safety Report 5361707-5 (Version None)
Quarter: 2007Q2

REPORT INFORMATION
  Report Type: 
  Country: None (occurrence: None)
  Receive Date: 20070615
  Receipt Date: 20070615
  Transmission Date: 20071010
  Serious: Yes (Death)
  Sender: FDA-Public Use
  Company Number: None

PATIENT
  Sex: Female
  Weight: 61.2356 kg

DRUGS (2)
  1. NO DOZ 200 MG MAXIMUM STRENGTH FAST ACTING ALERTNESS AID [Suspect]
     Dates: start: 20060510
  2. NO DOZ 200 MG MAXIMUM STRENGTH FAST ACTING ALERTNESS AID [Suspect]

REACTIONS (1)
  - DRUG TOXICITY [None]
